FAERS Safety Report 22332271 (Version 1)
Quarter: 2023Q2

REPORT INFORMATION
  Report Type: Spontaneous
  Country: US (occurrence: None)
  Receive Date: 20230516
  Receipt Date: 20230516
  Transmission Date: 20230721
  Serious: No
  Sender: FDA-Public Use
  Company Number: None

PATIENT
  Age: 51 Year
  Sex: Female
  Weight: 83.25 kg

DRUGS (7)
  1. LOSARTAN POTASSIUM [Suspect]
     Active Substance: LOSARTAN POTASSIUM
     Indication: Hypertension
     Dosage: OTHER QUANTITY : 1 TABLET(S);?FREQUENCY : DAILY;?
     Route: 048
     Dates: start: 20230401, end: 20230513
  2. LOSARTAN [Concomitant]
  3. ATENOLOL [Concomitant]
     Active Substance: ATENOLOL
  4. HYDROCHLOROTHIAZIDE [Concomitant]
     Active Substance: HYDROCHLOROTHIAZIDE
  5. ALEVE [Concomitant]
     Active Substance: NAPROXEN SODIUM
  6. ADVIL [Concomitant]
     Active Substance: IBUPROFEN
  7. Claritin [Concomitant]

REACTIONS (7)
  - Product substitution issue [None]
  - Rash [None]
  - Rash papular [None]
  - Chest discomfort [None]
  - Chest pain [None]
  - Palpitations [None]
  - Suspected product quality issue [None]

NARRATIVE: CASE EVENT DATE: 20230415
